FAERS Safety Report 4519038-9 (Version None)
Quarter: 2004Q4

REPORT INFORMATION
  Report Type: 
  Country: None (occurrence: None)
  Receive Date: 20041201
  Receipt Date: 20041119
  Transmission Date: 20050328
  Serious: Yes (Other)
  Sender: FDA-Public Use
  Company Number: 04ITY0254 297

PATIENT
  Age: 68 Year
  Sex: Male

DRUGS (4)
  1. AGGRASTAT [Suspect]
     Indication: MYOCARDIAL INFARCTION
     Dates: start: 20041006, end: 20041006
  2. ASPIRIN [Concomitant]
  3. HEPARIN SODIUM [Concomitant]
  4. NITRATE-DERIVATIVE (ORGANIC NITRATES) [Concomitant]

REACTIONS (3)
  - HYPERTENSIVE CRISIS [None]
  - PRURITUS [None]
  - TREMOR [None]
